FAERS Safety Report 7878436-6 (Version None)
Quarter: 2011Q4

REPORT INFORMATION
  Report Type: 
  Country: None (occurrence: None)
  Receive Date: 20111101
  Receipt Date: 20111024
  Transmission Date: 20120403
  Serious: Yes (Hospitalization)
  Sender: FDA-Public Use
  Company Number: US-UCBSA-044319

PATIENT
  Age: 29 Year
  Sex: Female

DRUGS (2)
  1. KEPPRA [Suspect]
     Dates: start: 20040101
  2. VIMPAT [Suspect]

REACTIONS (3)
  - GRAND MAL CONVULSION [None]
  - VOMITING [None]
  - COMPLEX PARTIAL SEIZURES [None]
